FAERS Safety Report 5405337-5 (Version None)
Quarter: 2007Q3

REPORT INFORMATION
  Report Type: 
  Country: None (occurrence: None)
  Receive Date: 20070803
  Receipt Date: 20070725
  Transmission Date: 20080115
  Serious: Yes (Hospitalization, Other)
  Sender: FDA-Public Use
  Company Number: US-ELI_LILLY_AND_COMPANY-US200707001537

PATIENT
  Age: 80 Year
  Sex: Female
  Weight: 52.607 kg

DRUGS (14)
  1. FORTEO [Suspect]
     Indication: OSTEOPOROSIS
     Dosage: 20 UG, DAILY (1/D)
     Dates: start: 20070308
  2. VITAMIN D [Concomitant]
  3. CALCIUM CHLORIDE [Concomitant]
  4. FOLIC ACID [Concomitant]
  5. LEVOTHYROXINE SODIUM [Concomitant]
  6. ASPIRIN [Concomitant]
  7. CYCLOPHOSPHAMIDE [Concomitant]
  8. ESTRADIOL [Concomitant]
  9. PANTOPRAZOLE SODIUM [Concomitant]
  10. TIOTROPIUM [Concomitant]
  11. ALBUTEROL [Concomitant]
  12. DARBEPOETIN ALFA [Concomitant]
  13. URSODIOL [Concomitant]
  14. PREDNISONE TAB [Concomitant]

REACTIONS (8)
  - ASTHENIA [None]
  - BACK PAIN [None]
  - BONE PAIN [None]
  - FALL [None]
  - HEADACHE [None]
  - NECK PAIN [None]
  - PUBIC RAMI FRACTURE [None]
  - SENSORY DISTURBANCE [None]
